FAERS Safety Report 25746693 (Version 1)
Quarter: 2025Q3

REPORT INFORMATION
  Report Type: Spontaneous
  Country: US (occurrence: US)
  Receive Date: 20250901
  Receipt Date: 20250901
  Transmission Date: 20251021
  Serious: No
  Sender: ROCHE
  Company Number: US-ROCHE-10000376915

PATIENT
  Sex: Male

DRUGS (2)
  1. ROZLYTREK [Suspect]
     Active Substance: ENTRECTINIB
     Indication: Lung neoplasm malignant
     Route: 048
     Dates: start: 202401
  2. ROZLYTREK [Suspect]
     Active Substance: ENTRECTINIB
     Indication: Metastases to bone

REACTIONS (1)
  - Arthralgia [Unknown]
